FAERS Safety Report 9814787 (Version 1)
Quarter: 2014Q1

REPORT INFORMATION
  Report Type: Spontaneous
  Country: US (occurrence: US)
  Receive Date: 20140113
  Receipt Date: 20140113
  Transmission Date: 20141002
  Serious: No
  Sender: FDA-Public Use
  Company Number: US-SANOFI-AVENTIS-2012SA058728

PATIENT
  Age: 43 Year
  Sex: Female
  Weight: 69.85 kg

DRUGS (13)
  1. DOCETAXEL WINTHROP [Suspect]
     Indication: BREAST CANCER
     Route: 041
     Dates: start: 20120713, end: 20120716
  2. DOCETAXEL WINTHROP [Suspect]
     Indication: BREAST CANCER
     Route: 041
     Dates: start: 20120622, end: 20120622
  3. DEXAMETHASONE [Concomitant]
     Route: 041
     Dates: start: 20120713, end: 20120713
  4. DEXAMETHASONE [Concomitant]
     Route: 041
     Dates: start: 20120715, end: 20120715
  5. ALOXI [Concomitant]
     Route: 041
     Dates: start: 20120713, end: 20120713
  6. ALOXI [Concomitant]
     Route: 041
     Dates: start: 20120715, end: 20120715
  7. ZOFRAN [Concomitant]
     Indication: NAUSEA
     Route: 048
     Dates: start: 20120611
  8. DILAUDID [Concomitant]
     Indication: PAIN
     Route: 048
     Dates: start: 20120319
  9. SYNTHROID [Concomitant]
     Indication: HYPOTHYROIDISM
     Route: 048
  10. SENNA [Concomitant]
     Indication: CONSTIPATION
     Route: 048
  11. EMLA [Concomitant]
     Indication: PAIN
  12. ELIGARD [Concomitant]
  13. XGEVA [Concomitant]

REACTIONS (4)
  - Skin disorder [Unknown]
  - Abdominal pain [Unknown]
  - Flushing [Recovered/Resolved]
  - Cough [Recovered/Resolved]
